FAERS Safety Report 8578670-6 (Version None)
Quarter: 2012Q3

REPORT INFORMATION
  Report Type: 
  Country: None (occurrence: None)
  Receive Date: 20120726
  Receipt Date: 20120711
  Transmission Date: 20120928
  Serious: Yes (Death, Life-Threatening, Hospitalization, Other)
  Sender: FDA-Public Use
  Company Number: 2012MA008617

PATIENT
  Age: 31 Year
  Sex: Male

DRUGS (1)
  1. FENTANYL CITRATE [Suspect]
     Indication: SUICIDAL IDEATION
     Dosage: 100 MCG;PO
     Route: 048
     Dates: end: 20100101

REACTIONS (23)
  - MIOSIS [None]
  - ASPARTATE AMINOTRANSFERASE INCREASED [None]
  - DYSPNOEA [None]
  - ELECTROENCEPHALOGRAM ABNORMAL [None]
  - BLOOD CREATINE PHOSPHOKINASE INCREASED [None]
  - HEART RATE INCREASED [None]
  - ELECTROCARDIOGRAM T WAVE PEAKED [None]
  - SINUS TACHYCARDIA [None]
  - POSTURING [None]
  - ACCIDENTAL DEATH [None]
  - WRONG TECHNIQUE IN DRUG USAGE PROCESS [None]
  - BLOOD PH DECREASED [None]
  - ASPIRATION [None]
  - CEREBRAL ISCHAEMIA [None]
  - OVERDOSE [None]
  - UNRESPONSIVE TO STIMULI [None]
  - VOMITING [None]
  - APNOEA [None]
  - ALANINE AMINOTRANSFERASE INCREASED [None]
  - BLOOD UREA INCREASED [None]
  - PANCREATITIS [None]
  - BLOOD PRESSURE DECREASED [None]
  - URINE COLOUR ABNORMAL [None]
